FAERS Safety Report 17016077 (Version 1)
Quarter: 2019Q4

REPORT INFORMATION
  Report Type: Spontaneous
  Country: US (occurrence: US)
  Receive Date: 20191111
  Receipt Date: 20191111
  Transmission Date: 20200122
  Serious: Yes (Other)
  Sender: FDA-Public Use
  Company Number: US-ACTELION-A-CH2019-197697

PATIENT
  Age: 9 Month
  Sex: Male

DRUGS (3)
  1. SILDENAFIL. [Concomitant]
     Active Substance: SILDENAFIL
     Indication: VASODILATATION
     Dosage: UNK
     Route: 048
  2. BOSENTAN. [Suspect]
     Active Substance: BOSENTAN
     Indication: PULMONARY HYPERTENSION
     Dosage: UNK
     Route: 048
  3. NITRIC OXIDE. [Concomitant]
     Active Substance: NITRIC OXIDE
     Indication: VASODILATATION
     Dosage: UNK
     Route: 055

REACTIONS (4)
  - Biopsy lung [Unknown]
  - Angiopathy [Unknown]
  - Emphysema [Unknown]
  - Diffuse alveolar damage [Unknown]
